FAERS Safety Report 26034705 (Version 3)
Quarter: 2025Q4

REPORT INFORMATION
  Report Type: Spontaneous
  Country: US (occurrence: None)
  Receive Date: 20251112
  Receipt Date: 20251211
  Transmission Date: 20260118
  Serious: Yes (Death, Other)
  Sender: APOTEX
  Company Number: US-APOTEX-2025AP032525

PATIENT
  Sex: Male

DRUGS (2)
  1. FLUTICASONE [Suspect]
     Active Substance: FLUTICASONE
     Indication: Product used for unknown indication
     Dosage: 4 DOSAGE FORM, QD
     Dates: start: 2025
  2. FLUTICASONE [Suspect]
     Active Substance: FLUTICASONE

REACTIONS (2)
  - Lung neoplasm malignant [Fatal]
  - Product delivery mechanism issue [Unknown]

NARRATIVE: CASE EVENT DATE: 20250101
